FAERS Safety Report 25047414 (Version 1)
Quarter: 2025Q1

REPORT INFORMATION
  Report Type: Spontaneous
  Country: US (occurrence: US)
  Receive Date: 20250306
  Receipt Date: 20250306
  Transmission Date: 20250408
  Serious: Yes (Hospitalization)
  Sender: CALLIDITAS THERAPEUTICS AB
  Company Number: US-Calliditas-2025CAL00063

PATIENT
  Age: 45 Year
  Sex: Female

DRUGS (1)
  1. TARPEYO [Suspect]
     Active Substance: BUDESONIDE
     Indication: IgA nephropathy
     Route: 048
     Dates: start: 20241212

REACTIONS (3)
  - Asthma [Recovered/Resolved]
  - Acne [Not Recovered/Not Resolved]
  - Cardiac operation [Unknown]

NARRATIVE: CASE EVENT DATE: 20241212
